FAERS Safety Report 13276082 (Version 1)
Quarter: 2017Q1

REPORT INFORMATION
  Report Type: Spontaneous
  Country: GB (occurrence: GB)
  Receive Date: 20170228
  Receipt Date: 20170228
  Transmission Date: 20170428
  Serious: Yes (Other)
  Sender: FDA-Public Use
  Company Number: GB-AUROBINDO-AUR-APL-2017-29940

PATIENT
  Age: 54 Year
  Sex: Female
  Weight: 98.42 kg

DRUGS (2)
  1. VALSARTAN 80MG [Suspect]
     Active Substance: VALSARTAN
     Indication: HYPERTENSION
     Dosage: 80 MG, ONCE A DAY
     Route: 048
     Dates: start: 20161220, end: 20170122
  2. OMEGA-3 FISH OIL +VITAMIN D [Concomitant]
     Indication: PRODUCT USED FOR UNKNOWN INDICATION
     Route: 065

REACTIONS (5)
  - Renal pain [Recovered/Resolved]
  - Pollakiuria [Recovered/Resolved]
  - Proteinuria [Recovered/Resolved]
  - Back pain [Recovered/Resolved]
  - Abdominal pain upper [Recovered/Resolved]

NARRATIVE: CASE EVENT DATE: 20170118
